FAERS Safety Report 11285873 (Version 5)
Quarter: 2018Q3

REPORT INFORMATION
  Report Type: Report from Study
  Country: US (occurrence: US)
  Receive Date: 20150721
  Receipt Date: 20180928
  Transmission Date: 20181010
  Serious: Yes (Other)
  Sender: FDA-Public Use
  Company Number: PHEH2015US012992

PATIENT
  Age: 36 Year
  Sex: Female
  Weight: 111.57 kg

DRUGS (2)
  1. LYRICA [Concomitant]
     Active Substance: PREGABALIN
     Indication: PRODUCT USED FOR UNKNOWN INDICATION
     Route: 065
  2. GILENYA [Suspect]
     Active Substance: FINGOLIMOD HYDROCHLORIDE
     Indication: RELAPSING-REMITTING MULTIPLE SCLEROSIS
     Dosage: 0.5 MG, QD
     Route: 048
     Dates: start: 20141212, end: 20150823

REACTIONS (21)
  - Condition aggravated [Not Recovered/Not Resolved]
  - Tarsal tunnel syndrome [Unknown]
  - Joint stiffness [Unknown]
  - Muscular weakness [Unknown]
  - Stress [Unknown]
  - Gait disturbance [Unknown]
  - Asthenia [Unknown]
  - Multiple sclerosis relapse [Unknown]
  - Pain in extremity [Unknown]
  - Dizziness [Unknown]
  - Fatigue [Not Recovered/Not Resolved]
  - Muscle spasms [Unknown]
  - Tremor [Unknown]
  - Balance disorder [Unknown]
  - Influenza like illness [Unknown]
  - Fibromyalgia [Recovering/Resolving]
  - Hypokinesia [Unknown]
  - Facial nerve disorder [Unknown]
  - Arthralgia [Unknown]
  - Muscle spasticity [Unknown]
  - Pain [Not Recovered/Not Resolved]

NARRATIVE: CASE EVENT DATE: 20150720
